FAERS Safety Report 21251582 (Version 4)
Quarter: 2023Q1

REPORT INFORMATION
  Report Type: Spontaneous
  Country: GB (occurrence: GB)
  Receive Date: 20220825
  Receipt Date: 20230328
  Transmission Date: 20230418
  Serious: Yes (Hospitalization)
  Sender: FDA-Public Use
  Company Number: GB-ASPAR-ASP-21-00726

PATIENT
  Sex: Female

DRUGS (17)
  1. CARBIDOPA\LEVODOPA [Suspect]
     Active Substance: CARBIDOPA\LEVODOPA
     Indication: Product used for unknown indication
     Dosage: CO-CARELDOPA 12.5/50MG - 2 IN MORNING
     Route: 065
     Dates: start: 20220726, end: 20220727
  2. CARBIDOPA\LEVODOPA [Suspect]
     Active Substance: CARBIDOPA\LEVODOPA
     Dosage: CO-CARELDOPA 25MG/100MG - ONE AT NIGHT
     Route: 065
     Dates: start: 20220726, end: 20220727
  3. ATORVASTATIN [Suspect]
     Active Substance: ATORVASTATIN
     Indication: Product used for unknown indication
     Dosage: 10 MILLIGRAM (MG) THREE A NIGHT
     Route: 065
     Dates: start: 20220726, end: 20220727
  4. ATORVASTATIN [Suspect]
     Active Substance: ATORVASTATIN
     Dosage: 1 AT NIGHT
     Route: 065
     Dates: start: 20220726, end: 20220727
  5. CHOLECALCIFEROL [Suspect]
     Active Substance: CHOLECALCIFEROL
     Indication: Product used for unknown indication
     Dosage: 800 ONE AT NIGHT
     Route: 065
     Dates: start: 20220726, end: 20220727
  6. CHOLECALCIFEROL [Suspect]
     Active Substance: CHOLECALCIFEROL
     Dosage: ONE IN MORNING
     Route: 065
     Dates: start: 20220726, end: 20220727
  7. GLICLAZIDE [Suspect]
     Active Substance: GLICLAZIDE
     Indication: Product used for unknown indication
     Dosage: GLICLAZIDE 60 MR - ONE MORNING AND NIGHT, TWICE DAILY
     Route: 065
     Dates: start: 20220726, end: 20220727
  8. LEVOTHYROXINE [Suspect]
     Active Substance: LEVOTHYROXINE
     Indication: Product used for unknown indication
     Dosage: 25 MICROGRAM, ONE DAILY
     Route: 065
     Dates: start: 20220726, end: 20220727
  9. LEVOTHYROXINE [Suspect]
     Active Substance: LEVOTHYROXINE
     Dosage: 100 MICROGRAM, ONE DAILY
     Route: 065
     Dates: start: 20220726, end: 20220727
  10. METFORMIN [Suspect]
     Active Substance: METFORMIN HYDROCHLORIDE
     Indication: Product used for unknown indication
     Dosage: 500 MILLIGRAM, ONE DAILY
     Route: 065
     Dates: start: 20220726, end: 20220727
  11. SENNA LEAF [Suspect]
     Active Substance: SENNA LEAF
     Indication: Product used for unknown indication
     Dosage: 7.5 MG TWO AT NIGHT
     Route: 065
     Dates: start: 20220726, end: 20220727
  12. SITAGLIPTIN PHOSPHATE [Suspect]
     Active Substance: SITAGLIPTIN PHOSPHATE
     Indication: Product used for unknown indication
     Dosage: 2 MORNING AND 1 AT NIGHT
     Route: 065
     Dates: start: 20220726, end: 20220727
  13. SITAGLIPTIN PHOSPHATE [Suspect]
     Active Substance: SITAGLIPTIN PHOSPHATE
     Dosage: 3 AT NIGHT
     Route: 065
  14. AMITRIPTYLINE [Concomitant]
     Active Substance: AMITRIPTYLINE
     Indication: Product used for unknown indication
     Dosage: 3 AT NIGHT
     Route: 065
  15. AMITRIPTYLINE [Concomitant]
     Active Substance: AMITRIPTYLINE
     Dosage: UNK
     Route: 065
  16. APIXABAN [Concomitant]
     Active Substance: APIXABAN
     Indication: Product used for unknown indication
     Dosage: 2.5MG - ONE TWICE DAILY
     Route: 065
  17. ACETAMINOPHEN [Concomitant]
     Active Substance: ACETAMINOPHEN
     Indication: Product used for unknown indication
     Dosage: 2 X 500MG THREE TIMES A DAY
     Route: 065

REACTIONS (7)
  - Circulatory collapse [Recovered/Resolved]
  - Product dispensing error [Recovered/Resolved]
  - Wrong product administered [Unknown]
  - Wrong patient received product [Unknown]
  - Loss of consciousness [Unknown]
  - Medication error [Unknown]
  - Loss of consciousness [Recovered/Resolved]

NARRATIVE: CASE EVENT DATE: 20220726
